FAERS Safety Report 6506711-6 (Version None)
Quarter: 2009Q4

REPORT INFORMATION
  Report Type: 
  Country: None (occurrence: None)
  Receive Date: 20091221
  Receipt Date: 20091211
  Transmission Date: 20100525
  Serious: Yes (Hospitalization)
  Sender: FDA-Public Use
  Company Number: FR-ROCHE-674342

PATIENT
  Sex: Female

DRUGS (2)
  1. TAMIFLU [Suspect]
     Route: 048
     Dates: start: 20091125, end: 20091126
  2. PANENZA [Suspect]
     Dosage: FIRST INJECTION
     Route: 030
     Dates: start: 20091124

REACTIONS (1)
  - INFLUENZA [None]
